FAERS Safety Report 12772361 (Version 4)
Quarter: 2023Q2

REPORT INFORMATION
  Report Type: Spontaneous
  Country: JP (occurrence: JP)
  Receive Date: 20160922
  Receipt Date: 20230525
  Transmission Date: 20230722
  Serious: Yes (Death, Other)
  Sender: FDA-Public Use
  Company Number: JP-JNJFOC-20160917641

PATIENT

DRUGS (2)
  1. STELARA [Suspect]
     Active Substance: USTEKINUMAB
     Indication: Psoriasis
     Dosage: DOSE UNKNOWN
     Route: 058
  2. ADALIMUMAB [Suspect]
     Active Substance: ADALIMUMAB
     Indication: Product used for unknown indication
     Dosage: DOSAGE FORM: UNSPECIFIED ,
     Route: 065

REACTIONS (7)
  - Cerebral haemorrhage [Fatal]
  - Pneumonia [Fatal]
  - Interstitial lung disease [Unknown]
  - Breast cancer [Unknown]
  - Gastric cancer [Unknown]
  - General physical condition abnormal [Unknown]
  - Fracture [Unknown]
